FAERS Safety Report 8977005 (Version 1)
Quarter: 2012Q4

REPORT INFORMATION
  Report Type: 
  Country: MX (occurrence: MX)
  Receive Date: 20121220
  Receipt Date: 20121220
  Transmission Date: 20130627
  Serious: Yes (Hospitalization)
  Sender: FDA-Public Use
  Company Number: MX-ELI_LILLY_AND_COMPANY-MX201212003385

PATIENT
  Age: 65 Year
  Sex: Male

DRUGS (12)
  1. HUMULIN NPH [Suspect]
     Dosage: 28 IU, qd
     Route: 058
     Dates: start: 20120217, end: 20120327
  2. HUMULIN NPH [Suspect]
     Dosage: 64 IU, qd
     Route: 058
     Dates: start: 20120327, end: 20120816
  3. RANITIDINE [Concomitant]
     Dosage: 150 mg, 2/W
     Route: 048
     Dates: start: 20120223
  4. ASPIRIN [Concomitant]
     Dosage: 100 mg, qd
     Route: 048
     Dates: start: 20120223
  5. CLOPIDOGREL BISULFATE [Concomitant]
     Dosage: 75 mg, qd
     Route: 048
  6. ATORVASTATIN CALCIUM [Concomitant]
     Dosage: 80 mg, qd
     Dates: start: 20120223, end: 20120327
  7. ATORVASTATIN CALCIUM [Concomitant]
     Dosage: 40 mg, qd
     Route: 048
     Dates: start: 20120327
  8. LOSARTAN POTASSIUM [Concomitant]
     Dosage: 100 mg, qd
     Route: 048
     Dates: start: 20120223, end: 20120913
  9. LOSARTAN POTASSIUM [Concomitant]
     Dosage: 50 mg, qd
     Route: 048
     Dates: start: 20120913
  10. ISOSORBIDE [Concomitant]
     Dosage: 10 mg, tid
     Route: 048
     Dates: start: 20120223
  11. SENOSIDOS A+B [Concomitant]
     Dosage: 1 DF, qd
     Route: 048
     Dates: start: 20120223, end: 20120301
  12. METFORMIN HYDROCHLORIDE [Concomitant]
     Dosage: 1700 mg, qd
     Route: 048
     Dates: start: 199902

REACTIONS (1)
  - Pyrexia [Recovered/Resolved]
